FAERS Safety Report 7031652-8 (Version None)
Quarter: 2010Q4

REPORT INFORMATION
  Report Type: 
  Country: None (occurrence: None)
  Receive Date: 20101006
  Receipt Date: 20101006
  Transmission Date: 20110411
  Serious: Yes (Other)
  Sender: FDA-Public Use
  Company Number: None

PATIENT
  Age: 43 Year
  Sex: Male
  Weight: 81.6475 kg

DRUGS (6)
  1. BUPROPION HCL [Suspect]
     Indication: ANXIETY
     Dosage: 150 MG 2X DAY PO
     Route: 048
     Dates: start: 20100929, end: 20101002
  2. BUPROPION HCL [Suspect]
     Indication: BIPOLAR I DISORDER
     Dosage: 150 MG 2X DAY PO
     Route: 048
     Dates: start: 20100929, end: 20101002
  3. METHYLPREDNISOLONE [Concomitant]
  4. NAPROXEN [Concomitant]
  5. CYCLOBENZ APRINE [Concomitant]
  6. HYDROCODONE [Concomitant]

REACTIONS (6)
  - ANXIETY [None]
  - CONFUSIONAL STATE [None]
  - HALLUCINATION [None]
  - NERVOUSNESS [None]
  - PANIC ATTACK [None]
  - TREMOR [None]
